FAERS Safety Report 18137506 (Version 2)
Quarter: 2020Q4

REPORT INFORMATION
  Report Type: Spontaneous
  Country: US (occurrence: US)
  Receive Date: 20200811
  Receipt Date: 20201016
  Transmission Date: 20210113
  Serious: No
  Sender: FDA-Public Use
  Company Number: US-GILEAD-2020-0489645

PATIENT
  Sex: Male

DRUGS (1)
  1. BIKTARVY [Suspect]
     Active Substance: BICTEGRAVIR SODIUM\EMTRICITABINE\TENOFOVIR ALAFENAMIDE FUMARATE
     Indication: PRODUCT USED FOR UNKNOWN INDICATION
     Dosage: UNK
     Route: 065
     Dates: start: 201806

REACTIONS (4)
  - Product packaging quantity issue [Recovered/Resolved]
  - Product dispensing error [Recovered/Resolved]
  - Product contamination physical [Recovered/Resolved]
  - Product counterfeit [Recovered/Resolved]

NARRATIVE: CASE EVENT DATE: 20190327
